FAERS Safety Report 5195621-5 (Version None)
Quarter: 2006Q4

REPORT INFORMATION
  Report Type: 
  Country: None (occurrence: None)
  Receive Date: 20061226
  Receipt Date: 20061226
  Transmission Date: 20070319
  Serious: Yes (Other)
  Sender: FDA-Public Use
  Company Number: None

PATIENT
  Sex: Female
  Weight: 68.9467 kg

DRUGS (1)
  1. PULMICORT [Suspect]
     Indication: ASTHMA
     Dates: start: 20060919, end: 20060919

REACTIONS (6)
  - FACE OEDEMA [None]
  - GINGIVAL PAIN [None]
  - LIP SWELLING [None]
  - PHARYNGEAL OEDEMA [None]
  - STOMATITIS [None]
  - THROAT IRRITATION [None]
